FAERS Safety Report 5847386-9 (Version None)
Quarter: 2008Q3

REPORT INFORMATION
  Report Type: 
  Country: None (occurrence: None)
  Receive Date: 20080813
  Receipt Date: 20080723
  Transmission Date: 20090109
  Serious: Yes (Hospitalization)
  Sender: FDA-Public Use
  Company Number: ENTC2008-0218

PATIENT
  Sex: Male

DRUGS (1)
  1. STALEVO 100 [Suspect]
     Dates: start: 20030101

REACTIONS (3)
  - FATIGUE [None]
  - HEPATIC CIRRHOSIS [None]
  - HEPATIC FAILURE [None]
